FAERS Safety Report 9759697 (Version 1)
Quarter: 2013Q4

REPORT INFORMATION
  Report Type: Spontaneous
  Country: US (occurrence: US)
  Receive Date: 20131216
  Receipt Date: 20131216
  Transmission Date: 20140711
  Serious: No
  Sender: FDA-Public Use
  Company Number: US-GILEAD-2010-0028702

PATIENT
  Sex: Female
  Weight: 87.09 kg

DRUGS (14)
  1. LETAIRIS [Suspect]
     Indication: PULMONARY ARTERIAL HYPERTENSION
     Route: 048
     Dates: start: 20091204
  2. IRON [Concomitant]
  3. PROTONIX [Concomitant]
  4. HYDROCHLOROTHIAZIDE [Concomitant]
  5. TRAZODONE [Concomitant]
  6. MEVACOR [Concomitant]
  7. LASIX [Concomitant]
  8. NIFEDIPINE [Concomitant]
  9. METOPROLOL [Concomitant]
  10. TEKTURNA [Concomitant]
  11. LISINOPRIL [Concomitant]
  12. POTASSIUM CHLORIDE [Concomitant]
  13. WARFARIN [Concomitant]
  14. ASPIRIN [Concomitant]

REACTIONS (1)
  - Dyspnoea [Unknown]
